FAERS Safety Report 23201375 (Version 1)
Quarter: 2023Q4

REPORT INFORMATION
  Report Type: Spontaneous
  Country: None (occurrence: US)
  Receive Date: 20231118
  Receipt Date: 20231118
  Transmission Date: 20240110
  Serious: No
  Sender: FDA-Public Use
  Company Number: US-LGM Pharma Solutions, LLC-2148428

PATIENT
  Age: 44 Year
  Sex: Male

DRUGS (2)
  1. CHENODAL [Suspect]
     Active Substance: CHENODIOL
     Indication: Lipidosis
     Route: 048
     Dates: start: 20150807
  2. ENBREL [Concomitant]
     Active Substance: ETANERCEPT
     Route: 065

REACTIONS (1)
  - Rheumatoid arthritis [Unknown]
